FAERS Safety Report 14574606 (Version 1)
Quarter: 2018Q1

REPORT INFORMATION
  Report Type: Spontaneous
  Country: US (occurrence: US)
  Receive Date: 20180224
  Receipt Date: 20180224
  Transmission Date: 20180509
  Serious: Yes (Other)
  Sender: FDA-Public Use
  Company Number: None

PATIENT
  Age: 54 Year
  Sex: Female
  Weight: 50.85 kg

DRUGS (2)
  1. CLARITIN [Concomitant]
     Active Substance: LORATADINE
  2. PROLIA [Suspect]
     Active Substance: DENOSUMAB
     Indication: BONE DENSITY DECREASED
     Dosage: QUANTITY:1 SHOT;OTHER FREQUENCY:EVERY SIX MONTH;?
     Route: 030
     Dates: start: 20171211

REACTIONS (3)
  - Rash [None]
  - Pain [None]
  - Lip swelling [None]

NARRATIVE: CASE EVENT DATE: 20180111
